FAERS Safety Report 25482211 (Version 1)
Quarter: 2025Q2

REPORT INFORMATION
  Report Type: Spontaneous
  Country: US (occurrence: US)
  Receive Date: 20250626
  Receipt Date: 20250626
  Transmission Date: 20250717
  Serious: Yes (Hospitalization)
  Sender: Norvium Bioscience
  Company Number: US-Norvium Bioscience LLC-080309

PATIENT
  Age: 31 Year
  Sex: Male

DRUGS (21)
  1. SERTRALINE HYDROCHLORIDE [Interacting]
     Active Substance: SERTRALINE HYDROCHLORIDE
     Indication: Anxiety
  2. VALPROATE SODIUM [Interacting]
     Active Substance: VALPROATE SODIUM
     Indication: Aggression
  3. CLONAZEPAM [Interacting]
     Active Substance: CLONAZEPAM
     Indication: Anxiety
  4. CLONIDINE [Interacting]
     Active Substance: CLONIDINE
     Indication: Anxiety
  5. RISPERIDONE [Interacting]
     Active Substance: RISPERIDONE
     Indication: Anxiety
  6. MODAFINIL [Interacting]
     Active Substance: MODAFINIL
     Indication: Somnolence
  7. LITHIUM [Concomitant]
     Active Substance: LITHIUM
     Indication: Aggression
  8. LITHIUM [Concomitant]
     Active Substance: LITHIUM
     Indication: Euphoric mood
  9. LITHIUM [Concomitant]
     Active Substance: LITHIUM
     Indication: Aggression
  10. LITHIUM [Concomitant]
     Active Substance: LITHIUM
     Indication: Euphoric mood
  11. LITHIUM [Concomitant]
     Active Substance: LITHIUM
     Indication: Aggression
  12. LITHIUM [Concomitant]
     Active Substance: LITHIUM
     Indication: Euphoric mood
  13. RISPERIDONE [Interacting]
     Active Substance: RISPERIDONE
     Indication: Anxiety
  14. CLONAZEPAM [Interacting]
     Active Substance: CLONAZEPAM
     Indication: Anxiety
  15. SERTRALINE HYDROCHLORIDE [Interacting]
     Active Substance: SERTRALINE HYDROCHLORIDE
     Indication: Anxiety
  16. SERTRALINE HYDROCHLORIDE [Interacting]
     Active Substance: SERTRALINE HYDROCHLORIDE
     Indication: Anxiety
  17. RISPERIDONE [Interacting]
     Active Substance: RISPERIDONE
     Indication: Anxiety
  18. RISPERIDONE [Interacting]
     Active Substance: RISPERIDONE
     Indication: Anxiety
  19. VALPROATE SODIUM [Interacting]
     Active Substance: VALPROATE SODIUM
     Indication: Euphoric mood
  20. VALPROATE SODIUM [Interacting]
     Active Substance: VALPROATE SODIUM
     Indication: Aggression
  21. VALPROATE SODIUM [Interacting]
     Active Substance: VALPROATE SODIUM
     Indication: Euphoric mood

REACTIONS (3)
  - Affective disorder [Recovered/Resolved]
  - Behaviour disorder [Recovered/Resolved]
  - Drug-genetic interaction [Unknown]
